FAERS Safety Report 4345702-0 (Version None)
Quarter: 2004Q2

REPORT INFORMATION
  Report Type: 
  Country: None (occurrence: None)
  Receive Date: 20040421
  Receipt Date: 20040406
  Transmission Date: 20050107
  Serious: Yes (Other)
  Sender: FDA-Public Use
  Company Number: 2004-DE-01967GD

PATIENT
  Age: 66 Year
  Sex: Female

DRUGS (9)
  1. IPRATROPIUM BROMIDE [Suspect]
     Indication: ASTHMA
     Dosage: 4 PUFFS (72 MCG) , IH
     Route: 055
  2. PREDNISONE [Suspect]
     Indication: ASTHMA
     Dosage: 12-DAY TAPERED REGIMEN
  3. ALBUTEROL SULFATE [Suspect]
     Indication: ASTHMA
     Dosage: FOUR 0.6-ML (3.0 MG) DOSES (SEE TEXT), IH
     Route: 055
  4. METHYLPREDNISOLONE [Suspect]
     Indication: ASTHMA
     Dosage: 125 MG, IV
     Route: 042
  5. THEOPHYLLINE [Concomitant]
  6. BECLOMETHASONE DIPROPIONATE [Concomitant]
  7. TRIAMCINOLONE ACETONIDE [Concomitant]
  8. DECONGESTANT (DECONGESTANTS AND ANTIALLERGICS) [Concomitant]
  9. CONJUGATED ESTROGEN [Concomitant]

REACTIONS (9)
  - ABNORMAL SENSATION IN EYE [None]
  - ANGLE CLOSURE GLAUCOMA [None]
  - ANXIETY [None]
  - CORNEAL OPACITY [None]
  - HEADACHE [None]
  - NAUSEA [None]
  - PHOTOPHOBIA [None]
  - PUPIL FIXED [None]
  - VISUAL ACUITY REDUCED [None]
